FAERS Safety Report 24037077 (Version 2)
Quarter: 2024Q3

REPORT INFORMATION
  Report Type: Spontaneous
  Country: JP (occurrence: JP)
  Receive Date: 20240701
  Receipt Date: 20240905
  Transmission Date: 20241016
  Serious: Yes (Other)
  Sender: SANOFI AVENTIS
  Company Number: JP-SA-2024SA187343

PATIENT
  Age: 44 Year
  Sex: Male

DRUGS (1)
  1. DUPIXENT [Suspect]
     Active Substance: DUPILUMAB
     Indication: Chronic eosinophilic rhinosinusitis
     Dosage: UNK
     Route: 058

REACTIONS (6)
  - Eosinophilic pneumonia [Recovering/Resolving]
  - Pyrexia [Recovering/Resolving]
  - Malaise [Recovering/Resolving]
  - Inflammation [Recovering/Resolving]
  - Cough [Recovering/Resolving]
  - Back pain [Recovering/Resolving]
